FAERS Safety Report 9313222 (Version 1)
Quarter: 2013Q2

REPORT INFORMATION
  Report Type: Spontaneous
  Country: SE (occurrence: SE)
  Receive Date: 20130528
  Receipt Date: 20130528
  Transmission Date: 20140414
  Serious: Yes (Hospitalization)
  Sender: FDA-Public Use
  Company Number: SE-ASTRAZENECA-2013SE26186

PATIENT
  Age: 92 Year
  Sex: Female

DRUGS (5)
  1. ATACAND PLUS [Suspect]
     Route: 048
     Dates: end: 20130124
  2. IMPUGAN [Concomitant]
  3. NOLVADEX [Concomitant]
  4. TROMBYL [Concomitant]
  5. TABLET FOR HYPERTONIA [Concomitant]

REACTIONS (12)
  - Hypotension [Unknown]
  - Abdominal pain [Unknown]
  - Diarrhoea [Unknown]
  - Performance status decreased [Unknown]
  - Dyspnoea [Unknown]
  - Fatigue [Unknown]
  - Malaise [Unknown]
  - Dehydration [Unknown]
  - Iron deficiency anaemia [Unknown]
  - Folate deficiency [Unknown]
  - Renal failure acute [Unknown]
  - Blood creatinine increased [Unknown]
